FAERS Safety Report 8544913-8 (Version None)
Quarter: 2012Q3

REPORT INFORMATION
  Report Type: 
  Country: None (occurrence: None)
  Receive Date: 20120727
  Receipt Date: 20120723
  Transmission Date: 20120928
  Serious: Yes (Hospitalization)
  Sender: FDA-Public Use
  Company Number: CA-ROCHE-1091911

PATIENT
  Age: 60 Year
  Sex: Female

DRUGS (3)
  1. TYKERB [Suspect]
     Indication: PRODUCT USED FOR UNKNOWN INDICATION
     Route: 048
  2. CORTICOSTEROID (UNK INGREDIENTS) [Concomitant]
     Route: 048
  3. XELODA [Suspect]
     Indication: PRODUCT USED FOR UNKNOWN INDICATION
     Route: 065

REACTIONS (7)
  - FALL [None]
  - CONFUSIONAL STATE [None]
  - FATIGUE [None]
  - DIARRHOEA [None]
  - OEDEMA PERIPHERAL [None]
  - ASTHENIA [None]
  - DECREASED APPETITE [None]
